FAERS Safety Report 5978596-8 (Version None)
Quarter: 2008Q4

REPORT INFORMATION
  Report Type: 
  Country: None (occurrence: None)
  Receive Date: 20081204
  Receipt Date: 20081127
  Transmission Date: 20090506
  Serious: Yes (Life-Threatening, Hospitalization)
  Sender: FDA-Public Use
  Company Number: B0547987A

PATIENT
  Age: 8 Year
  Sex: Male
  Weight: 25 kg

DRUGS (10)
  1. AUGMENTIN '125' [Suspect]
     Route: 048
     Dates: start: 20080905, end: 20080909
  2. CARBAMAZEPINE [Suspect]
     Indication: EPILEPSY
     Dosage: 100MG PER DAY
     Route: 048
  3. CARBAMAZEPINE [Suspect]
     Dosage: 300MG PER DAY
     Route: 048
     Dates: start: 20080902, end: 20080929
  4. VALPROATE SODIUM [Concomitant]
     Indication: EPILEPSY
     Route: 048
     Dates: end: 20080929
  5. CLOBAZAM [Concomitant]
     Indication: EPILEPSY
     Dosage: 25MG PER DAY
     Route: 048
  6. LEVETIRACETAM [Concomitant]
     Indication: EPILEPSY
     Dosage: 600MG PER DAY
     Route: 048
  7. TOPIRAMATE [Concomitant]
     Indication: EPILEPSY
     Dosage: 100MG PER DAY
     Route: 048
     Dates: end: 20080603
  8. MELATONIN [Concomitant]
     Indication: SLEEP DISORDER
     Dosage: 9MG PER DAY
     Route: 048
  9. ARIPIPRAZOLE [Concomitant]
     Dosage: 5MG PER DAY
     Route: 048
     Dates: end: 20080610
  10. ARIPIPRAZOLE [Concomitant]
     Dosage: 2.5MG PER DAY
     Route: 048
     Dates: start: 20080101, end: 20080610

REACTIONS (1)
  - ACUTE HEPATIC FAILURE [None]
